FAERS Safety Report 10914284 (Version 1)
Quarter: 2015Q1

REPORT INFORMATION
  Report Type: Spontaneous
  Country: US (occurrence: None)
  Receive Date: 20150311
  Receipt Date: 20150311
  Transmission Date: 20150721
  Serious: Yes (Life-Threatening, Hospitalization)
  Sender: FDA-Public Use
  Company Number: US-2015TEC0000012

PATIENT
  Age: 42 Year
  Sex: Female

DRUGS (1)
  1. HEPARIN SODIUM INJECTION USP, PRESERVATIVE FREE (HEPARIN SODIUM) INJECTION [Suspect]
     Active Substance: HEPARIN SODIUM
     Indication: PULMONARY EMBOLISM
     Dosage: 80 UNITS/KG
     Route: 042

REACTIONS (8)
  - Abdominal pain [None]
  - Antiphospholipid syndrome [None]
  - Heparin-induced thrombocytopenia [None]
  - Haematemesis [None]
  - Peripheral coldness [None]
  - Mental status changes [None]
  - Encephalopathy [None]
  - Livedo reticularis [None]
